FAERS Safety Report 6247774-5 (Version None)
Quarter: 2009Q2

REPORT INFORMATION
  Report Type: 
  Country: None (occurrence: None)
  Receive Date: 20090626
  Receipt Date: 20090622
  Transmission Date: 20091009
  Serious: Yes (Life-Threatening)
  Sender: FDA-Public Use
  Company Number: DE-SANOFI-SYNTHELABO-A04200900864

PATIENT
  Age: 79 Year
  Sex: Female
  Weight: 62 kg

DRUGS (1)
  1. QUENSYL [Suspect]
     Indication: LICHENOID KERATOSIS
     Dosage: 2 DF DOSAGE FORM
     Route: 048

REACTIONS (1)
  - ELECTROLYTE IMBALANCE [None]
